FAERS Safety Report 22322382 (Version 1)
Quarter: 2023Q2

REPORT INFORMATION
  Report Type: Spontaneous
  Country: US (occurrence: US)
  Receive Date: 20230516
  Receipt Date: 20230516
  Transmission Date: 20230721
  Serious: No
  Sender: FDA-Public Use
  Company Number: US-Axsome Therapeutics, Inc.-AXS202211-000125

PATIENT
  Age: 32 Year
  Sex: Female
  Weight: 71.732 kg

DRUGS (5)
  1. SUNOSI [Suspect]
     Active Substance: SOLRIAMFETOL
     Indication: Narcolepsy
     Dosage: 150 MG QAM
     Route: 048
  2. Aderall [Concomitant]
     Indication: Somnolence
     Dosage: 30 MG PO Q 3-4 HR PM BEFORE 2 PM.
  3. XYWAV [Concomitant]
     Active Substance: CALCIUM OXYBATE\MAGNESIUM OXYBATE\POTASSIUM OXYBATE\SODIUM OXYBATE
     Indication: Product used for unknown indication
     Dosage: 2.25 G QHS AND 2.25 G IN 4 HRS, 30 DAYS, 6 REFILLS
  4. MODAFINIL [Concomitant]
     Active Substance: MODAFINIL
     Indication: Narcolepsy
     Dosage: 20 MG QAM
  5. NUVIGIL [Concomitant]
     Active Substance: ARMODAFINIL

REACTIONS (1)
  - Drug ineffective [Unknown]
